FAERS Safety Report 21164489 (Version 1)
Quarter: 2022Q3

REPORT INFORMATION
  Report Type: Spontaneous
  Country: NL (occurrence: NL)
  Receive Date: 20220803
  Receipt Date: 20220803
  Transmission Date: 20221026
  Serious: Yes (Other)
  Sender: FDA-Public Use
  Company Number: NL-EMA-DD-20210722-shukla_v-114601

PATIENT
  Age: 82 Year
  Sex: Male

DRUGS (1)
  1. AMOXICILLIN\CLAVULANIC ACID [Suspect]
     Active Substance: AMOXICILLIN\CLAVULANIC ACID
     Indication: Systemic inflammatory response syndrome
     Dosage: UNK
     Route: 042

REACTIONS (8)
  - Drug hypersensitivity [Recovering/Resolving]
  - Arteriospasm coronary [Recovered/Resolved]
  - Acute myocardial infarction [Recovered/Resolved]
  - Electrocardiogram change [Recovered/Resolved]
  - Rash erythematous [Recovering/Resolving]
  - Electrocardiogram ST segment elevation [Recovering/Resolving]
  - Cardio-respiratory arrest [Recovered/Resolved]
  - Kounis syndrome [Recovering/Resolving]
